FAERS Safety Report 9897365 (Version 1)
Quarter: 2014Q1

REPORT INFORMATION
  Report Type: Report from Study
  Country: CA (occurrence: CA)
  Receive Date: 20140214
  Receipt Date: 20140214
  Transmission Date: 20141002
  Serious: Yes (Other)
  Sender: FDA-Public Use
  Company Number: CA-JNJFOC-20140205597

PATIENT
  Sex: Male
  Weight: 136.08 kg

DRUGS (1)
  1. REMICADE [Suspect]
     Indication: CROHN^S DISEASE
     Route: 042

REACTIONS (4)
  - Gastric neoplasm [Unknown]
  - Rectal fissure [Unknown]
  - Fistula [Unknown]
  - Skin wound [Unknown]
